FAERS Safety Report 9785639 (Version 1)
Quarter: 2013Q4

REPORT INFORMATION
  Report Type: Spontaneous
  Country: TR (occurrence: None)
  Receive Date: 20131224
  Receipt Date: 20131224
  Transmission Date: 20140711
  Serious: Yes (Hospitalization)
  Sender: FDA-Public Use
  Company Number: 2082598

PATIENT
  Age: 54 Year
  Sex: Female

DRUGS (2)
  1. VANCOMYCIN HYDROCHLORIDE [Suspect]
     Indication: ANTIBIOTIC THERAPY
     Route: 042
  2. CIPROFLOXACIN [Concomitant]

REACTIONS (6)
  - Thrombocytopenia [None]
  - Erythema [None]
  - Haematoma [None]
  - Wound [None]
  - Endocarditis [None]
  - Disseminated intravascular coagulation [None]
